FAERS Safety Report 9485784 (Version 2)
Quarter: 2016Q4

REPORT INFORMATION
  Report Type: Report from Study
  Country: US (occurrence: US)
  Receive Date: 20130829
  Receipt Date: 20161230
  Transmission Date: 20170207
  Serious: Yes (Death)
  Sender: FDA-Public Use
  Company Number: US-ROCHE-1265367

PATIENT

DRUGS (2)
  1. ENZASTAURIN [Suspect]
     Active Substance: ENZASTAURIN
     Indication: METASTATIC NEOPLASM
     Route: 048
  2. BEVACIZUMAB [Suspect]
     Active Substance: BEVACIZUMAB
     Indication: METASTATIC NEOPLASM
     Route: 042

REACTIONS (1)
  - Ventricular tachycardia [Fatal]
